FAERS Safety Report 19464567 (Version 6)
Quarter: 2021Q4

REPORT INFORMATION
  Report Type: Report from Study
  Country: US (occurrence: US)
  Receive Date: 20210626
  Receipt Date: 20211120
  Transmission Date: 20220303
  Serious: No
  Sender: FDA-Public Use
  Company Number: NVSC2021US137183

PATIENT
  Sex: Female

DRUGS (1)
  1. COSENTYX [Suspect]
     Active Substance: SECUKINUMAB
     Indication: Psoriasis
     Dosage: UNK UNK, UNKNOWN
     Route: 065

REACTIONS (2)
  - Psoriasis [Unknown]
  - Rash [Unknown]
